FAERS Safety Report 11595768 (Version 5)
Quarter: 2016Q2

REPORT INFORMATION
  Report Type: Report from Study
  Country: KR (occurrence: KR)
  Receive Date: 20151006
  Receipt Date: 20160516
  Transmission Date: 20160815
  Serious: Yes (Other)
  Sender: FDA-Public Use
  Company Number: PHHY2014KR123082

PATIENT
  Age: 53 Year
  Sex: Female

DRUGS (3)
  1. GLIVEC [Suspect]
     Active Substance: IMATINIB MESYLATE
     Indication: CHRONIC MYELOID LEUKAEMIA
     Dosage: 400 MG, QD (PER DAY)
     Route: 048
     Dates: start: 20060727, end: 20091023
  2. TASIGNA [Suspect]
     Active Substance: NILOTINIB
     Dosage: 400 MG, QD (PER DAY)
     Route: 048
     Dates: start: 2010
  3. TASIGNA [Suspect]
     Active Substance: NILOTINIB
     Indication: CHRONIC MYELOID LEUKAEMIA
     Dosage: 400 MG, BID
     Route: 048
     Dates: start: 20091024, end: 2010

REACTIONS (8)
  - Musculoskeletal pain [Unknown]
  - Dyspepsia [Not Recovered/Not Resolved]
  - Chest discomfort [Unknown]
  - Pain in extremity [Unknown]
  - Angina pectoris [Recovering/Resolving]
  - Nausea [Unknown]
  - Dyspnoea [Unknown]
  - Vomiting [Unknown]

NARRATIVE: CASE EVENT DATE: 201209
